FAERS Safety Report 5676050-4 (Version None)
Quarter: 2008Q1

REPORT INFORMATION
  Report Type: 
  Country: None (occurrence: None)
  Receive Date: 20080321
  Receipt Date: 20080310
  Transmission Date: 20080703
  Serious: Yes (Other)
  Sender: FDA-Public Use
  Company Number: BR-ROCHE-549548

PATIENT
  Age: 24 Year
  Sex: Female
  Weight: 55 kg

DRUGS (2)
  1. ROACUTAN [Suspect]
     Indication: ACNE
     Route: 048
     Dates: start: 20070202, end: 20080210
  2. CICLO [Concomitant]
     Indication: CONTRACEPTION
     Dosage: DRUG NAME REPORTED AS: CICLO21.

REACTIONS (2)
  - NO ADVERSE EVENT [None]
  - PREGNANCY [None]
